FAERS Safety Report 15099890 (Version 1)
Quarter: 2018Q4

REPORT INFORMATION
  Report Type: Spontaneous
  Country: US (occurrence: US)
  Receive Date: 20180703
  Receipt Date: 20180703
  Transmission Date: 20190204
  Serious: No
  Sender: FDA-Public Use
  Company Number: US-INTERSECT ENT, INC.-2051219

PATIENT
  Age: 60 Year
  Sex: Male

DRUGS (1)
  1. SINUVA [Suspect]
     Active Substance: MOMETASONE FUROATE
     Indication: NASAL POLYPS
     Route: 050
     Dates: start: 20180411

REACTIONS (1)
  - Nasal eosinophils present [Not Recovered/Not Resolved]

NARRATIVE: CASE EVENT DATE: 20180427
